FAERS Safety Report 8484731-2 (Version None)
Quarter: 2012Q3

REPORT INFORMATION
  Report Type: 
  Country: None (occurrence: None)
  Receive Date: 20120703
  Receipt Date: 20120511
  Transmission Date: 20120928
  Serious: No
  Sender: FDA-Public Use
  Company Number: US-TEVA-338084USA

PATIENT
  Sex: Male
  Weight: 81.72 kg

DRUGS (2)
  1. NUVIGIL [Suspect]
     Indication: SLEEP APNOEA SYNDROME
     Dosage: Q AM
     Route: 048
     Dates: start: 20120501, end: 20120510
  2. PRAVASTATIN [Concomitant]

REACTIONS (5)
  - DISTURBANCE IN ATTENTION [None]
  - BALANCE DISORDER [None]
  - FEELING JITTERY [None]
  - HEADACHE [None]
  - SLEEP DISORDER [None]
